FAERS Safety Report 8557844-4 (Version None)
Quarter: 2012Q3

REPORT INFORMATION
  Report Type: 
  Country: None (occurrence: None)
  Receive Date: 20120801
  Receipt Date: 20120727
  Transmission Date: 20120928
  Serious: Yes (Hospitalization)
  Sender: FDA-Public Use
  Company Number: US-GLAXOSMITHKLINE-A0987423A

PATIENT
  Age: 58 Year
  Sex: Female

DRUGS (2)
  1. ADVAIR [Suspect]
     Indication: CHRONIC OBSTRUCTIVE PULMONARY DISEASE
     Dosage: 1PUFF PER DAY
     Route: 055
  2. EYE DROPS [Concomitant]

REACTIONS (5)
  - MYOCARDIAL INFARCTION [None]
  - HEAT RASH [None]
  - DYSPNOEA [None]
  - CORONARY ARTERY OCCLUSION [None]
  - PRURITUS [None]
